FAERS Safety Report 7125205-0 (Version None)
Quarter: 2010Q4

REPORT INFORMATION
  Report Type: 
  Country: None (occurrence: None)
  Receive Date: 20101129
  Receipt Date: 20101124
  Transmission Date: 20110411
  Serious: Yes (Disabling)
  Sender: FDA-Public Use
  Company Number: DE-SANOFI-AVENTIS-2010SA054912

PATIENT
  Age: 79 Year
  Sex: Female
  Weight: 80 kg

DRUGS (5)
  1. MULTAQ [Suspect]
     Indication: ATRIAL FIBRILLATION
     Route: 048
     Dates: start: 20100710, end: 20100809
  2. SIMVASTATIN [Concomitant]
     Route: 048
     Dates: start: 20080101
  3. DELIX [Concomitant]
     Indication: HYPERTENSION
     Route: 048
     Dates: start: 20080101
  4. BISOPROLOL FUMARATE [Concomitant]
     Indication: HYPERTENSION
     Route: 048
     Dates: start: 20080101
  5. MARCUMAR [Concomitant]
     Indication: ATRIAL FIBRILLATION
     Route: 048
     Dates: start: 20080101

REACTIONS (4)
  - AGEUSIA [None]
  - ANOSMIA [None]
  - FATIGUE [None]
  - OEDEMA PERIPHERAL [None]
